FAERS Safety Report 14120161 (Version 1)
Quarter: 2017Q4

REPORT INFORMATION
  Report Type: Report from Study
  Country: US (occurrence: US)
  Receive Date: 20171024
  Receipt Date: 20171024
  Transmission Date: 20180321
  Serious: Yes (Other)
  Sender: FDA-Public Use
  Company Number: US-AMGEN-USASP2017158712

PATIENT
  Age: 47 Year
  Sex: Female

DRUGS (2)
  1. OXYMORPHONE [Suspect]
     Active Substance: OXYMORPHONE
     Indication: PRODUCT USED FOR UNKNOWN INDICATION
     Dosage: UNK
     Route: 065
  2. ENBREL [Suspect]
     Active Substance: ETANERCEPT
     Indication: PRODUCT USED FOR UNKNOWN INDICATION
     Dosage: UNK
     Route: 065
     Dates: start: 2016

REACTIONS (9)
  - Injection site pain [Unknown]
  - Migraine [Unknown]
  - Pain [Unknown]
  - Stress [Unknown]
  - Asthenia [Unknown]
  - Injection site bruising [Not Recovered/Not Resolved]
  - Epilepsy [Not Recovered/Not Resolved]
  - Joint crepitation [Unknown]
  - Pyrexia [Unknown]
